FAERS Safety Report 25356811 (Version 1)
Quarter: 2025Q2

REPORT INFORMATION
  Report Type: Spontaneous
  Country: FR (occurrence: FR)
  Receive Date: 20250526
  Receipt Date: 20250526
  Transmission Date: 20250716
  Serious: Yes (Hospitalization, Other)
  Sender: CHEPLAPHARM
  Company Number: None

PATIENT
  Age: 54 Year
  Sex: Female
  Weight: 53.7 kg

DRUGS (14)
  1. CAPECITABINE [Suspect]
     Active Substance: CAPECITABINE
     Indication: Pancreatic carcinoma
     Route: 048
     Dates: start: 202502, end: 20250404
  2. TEMOZOLOMIDE [Suspect]
     Active Substance: TEMOZOLOMIDE
     Indication: Pancreatic carcinoma
     Route: 048
     Dates: start: 202502, end: 20250404
  3. IMOVANE [Concomitant]
     Active Substance: ZOPICLONE
     Dosage: 1/2 TABLET IN THE EVENING?DAILY DOSE: 0.5 DOSAGE FORM
  4. TITANOREINE [Concomitant]
     Active Substance: CARRAGEENAN\TITANIUM\ZINC
  5. Daflon [Concomitant]
  6. Spasfon [Concomitant]
     Indication: Abdominal pain
  7. NALOXONE HYDROCHLORIDE\OXYCODONE HYDROCHLORIDE [Concomitant]
     Active Substance: NALOXONE HYDROCHLORIDE\OXYCODONE HYDROCHLORIDE
  8. PAROXETINE [Concomitant]
     Active Substance: PAROXETINE
  9. STROMECTOL [Concomitant]
     Active Substance: IVERMECTIN
  10. LEUCOVORIN [Concomitant]
     Active Substance: LEUCOVORIN\LEUCOVORIN CALCIUM
     Dates: start: 20241023
  11. LEUCOVORIN [Concomitant]
     Active Substance: LEUCOVORIN\LEUCOVORIN CALCIUM
     Dates: start: 20250408, end: 20250409
  12. FLUOROURACIL [Concomitant]
     Active Substance: FLUOROURACIL
     Dates: start: 20241023
  13. FLUOROURACIL [Concomitant]
     Active Substance: FLUOROURACIL
     Dates: start: 20250408, end: 20250409
  14. OXALIPLATIN [Concomitant]
     Active Substance: OXALIPLATIN
     Dates: start: 20250408, end: 20250409

REACTIONS (3)
  - Subacute cutaneous lupus erythematosus [Recovering/Resolving]
  - Neutropenia [Unknown]
  - Proteinuria [Unknown]

NARRATIVE: CASE EVENT DATE: 20250306
